FAERS Safety Report 5657676-0 (Version None)
Quarter: 2008Q1

REPORT INFORMATION
  Report Type: 
  Country: None (occurrence: None)
  Receive Date: 20080310
  Receipt Date: 20080303
  Transmission Date: 20080703
  Serious: Yes (Death)
  Sender: FDA-Public Use
  Company Number: TR-BOEHRINGER INGELHEIM GMBH, GERMANY-2008-BP-03144RO

PATIENT
  Age: 6 Year
  Sex: Male

DRUGS (12)
  1. METHOTREXATE [Suspect]
     Indication: NON-HODGKIN'S LYMPHOMA
     Route: 037
  2. CYCLOPHOSPHAMIDE [Suspect]
     Indication: NON-HODGKIN'S LYMPHOMA
  3. PREDNISONE TAB [Suspect]
     Indication: NON-HODGKIN'S LYMPHOMA
  4. LEUCOVORIN CALCIUM [Suspect]
     Indication: NON-HODGKIN'S LYMPHOMA
  5. VINCRISTINE [Suspect]
     Indication: NON-HODGKIN'S LYMPHOMA
  6. IFOSFAMIDE [Suspect]
     Indication: NON-HODGKIN'S LYMPHOMA
  7. CYTARABINE [Suspect]
     Indication: NON-HODGKIN'S LYMPHOMA
  8. ETOPOSIDE [Suspect]
     Indication: NON-HODGKIN'S LYMPHOMA
  9. DOXORUBICIN HCL [Suspect]
     Indication: NON-HODGKIN'S LYMPHOMA
  10. PHENYTOIN [Concomitant]
     Indication: CEREBRAL HAEMATOMA
  11. DEXAMETHASONE TAB [Concomitant]
     Indication: CEREBRAL HAEMATOMA
  12. MANNITOL [Concomitant]
     Indication: CEREBRAL HAEMATOMA

REACTIONS (3)
  - CEREBRAL HAEMATOMA [None]
  - DISEASE PROGRESSION [None]
  - HAEMOGLOBIN DECREASED [None]
